FAERS Safety Report 11289460 (Version 1)
Quarter: 2015Q3

REPORT INFORMATION
  Report Type: Spontaneous
  Country: US (occurrence: US)
  Receive Date: 20150721
  Receipt Date: 20150721
  Transmission Date: 20151125
  Serious: No
  Sender: FDA-Public Use
  Company Number: US-GALDERMA-US14004011

PATIENT
  Age: 66 Year
  Sex: Female

DRUGS (14)
  1. GRAVE BONE CALCIUM [Concomitant]
  2. SELENIUM [Concomitant]
     Active Substance: SELENIUM
     Dosage: 200 MCG
  3. ULTRA D-3 [Concomitant]
     Dosage: 5000
  4. METHYL B-12 [Concomitant]
     Dosage: 500 MCG
  5. ARMOUR THYROID [Concomitant]
     Active Substance: THYROID, PORCINE\THYROID, UNSPECIFIED
     Dosage: 65 MG
     Route: 048
  6. MAGNESIUM GLYCINATE [Concomitant]
     Active Substance: MAGNESIUM GLYCINATE
     Dosage: 1200 MG
  7. ZINC [Concomitant]
     Active Substance: ZINC\ZINC CHLORIDE
     Dosage: 50 MG
  8. UNSPECIFIED HEADACHE PILL [Concomitant]
     Indication: HEADACHE
     Route: 048
  9. STRONTIUM [Concomitant]
     Active Substance: STRONTIUM
  10. BORAGE OIL [Concomitant]
     Active Substance: BORAGE OIL
  11. ACIDOPHILUS [Concomitant]
     Active Substance: LACTOBACILLUS ACIDOPHILUS
  12. ORACEA [Suspect]
     Active Substance: DOXYCYCLINE
     Indication: ACNE
     Dosage: 40 MG
     Route: 048
     Dates: start: 201410, end: 20141022
  13. ORACEA [Suspect]
     Active Substance: DOXYCYCLINE
     Indication: ACNE
     Dosage: 40 MG
     Route: 048
     Dates: start: 201404, end: 201406
  14. ORACEA [Suspect]
     Active Substance: DOXYCYCLINE
     Indication: ACNE
     Dosage: 40 MG
     Route: 048
     Dates: start: 2013, end: 2013

REACTIONS (8)
  - Fungal infection [Recovered/Resolved]
  - Product use issue [Recovered/Resolved]
  - Vision blurred [Recovered/Resolved]
  - Functional gastrointestinal disorder [Recovered/Resolved]
  - Gastrointestinal sounds abnormal [Recovered/Resolved]
  - Head discomfort [Recovered/Resolved]
  - Diarrhoea [Not Recovered/Not Resolved]
  - Dizziness [Not Recovered/Not Resolved]

NARRATIVE: CASE EVENT DATE: 2013
